FAERS Safety Report 5142827-7 (Version None)
Quarter: 2006Q4

REPORT INFORMATION
  Report Type: 
  Country: None (occurrence: None)
  Receive Date: 20061030
  Receipt Date: 20061016
  Transmission Date: 20070319
  Serious: Yes (Hospitalization)
  Sender: FDA-Public Use
  Company Number: 2006BI014968

PATIENT
  Age: 54 Year
  Sex: Male
  Weight: 71.2147 kg

DRUGS (13)
  1. NATALIZUMAB [Suspect]
     Indication: MULTIPLE SCLEROSIS
     Dosage: 300 MG QM IV
     Route: 042
     Dates: start: 20050131, end: 20050131
  2. NATALIZUMAB [Suspect]
     Indication: MULTIPLE SCLEROSIS
     Dosage: 300 MG QM IV
     Route: 042
     Dates: start: 20060913, end: 20061011
  3. BACLOFEN [Concomitant]
  4. KLONOPIN [Concomitant]
  5. LEXAPRO [Concomitant]
  6. LIPITOR [Concomitant]
  7. VERAPAMIL [Concomitant]
  8. PROVIGIL [Concomitant]
  9. NEURONTIN [Concomitant]
  10. TIMOPTIC DROPS [Concomitant]
  11. COUMADIN [Concomitant]
  12. PERCOCET [Concomitant]
  13. CIALIS [Concomitant]

REACTIONS (9)
  - CHILLS [None]
  - CORONARY ARTERY OCCLUSION [None]
  - CORONARY ARTERY STENOSIS [None]
  - HEADACHE [None]
  - HEART RATE IRREGULAR [None]
  - HYPERTENSION [None]
  - INFUSION RELATED REACTION [None]
  - MITRAL VALVE INCOMPETENCE [None]
  - MYOCARDIAL INFARCTION [None]
